FAERS Safety Report 7573585-4 (Version None)
Quarter: 2011Q2

REPORT INFORMATION
  Report Type: 
  Country: None (occurrence: None)
  Receive Date: 20110627
  Receipt Date: 20110620
  Transmission Date: 20111010
  Serious: Yes (Other)
  Sender: FDA-Public Use
  Company Number: US-PFIZER INC-2011136800

PATIENT
  Sex: Female

DRUGS (2)
  1. GEODON [Suspect]
     Dosage: 60 MG, UNK
  2. LEXAPRO [Suspect]
     Dosage: UNK

REACTIONS (3)
  - ANXIETY [None]
  - PANIC ATTACK [None]
  - DRUG WITHDRAWAL SYNDROME [None]
